FAERS Safety Report 5822878-7 (Version None)
Quarter: 2008Q3

REPORT INFORMATION
  Report Type: 
  Country: None (occurrence: None)
  Receive Date: 20080724
  Receipt Date: 20080724
  Transmission Date: 20090109
  Serious: Yes (Death, Life-Threatening, Hospitalization, Disabling)
  Sender: FDA-Public Use
  Company Number: None

PATIENT
  Age: 69 Year
  Sex: Female
  Weight: 102.0593 kg

DRUGS (10)
  1. ESTROGENIC SUBSTANCE [Suspect]
     Indication: MENOPAUSE
     Dates: start: 20040101, end: 20070101
  2. PAXIL [Concomitant]
  3. PROZAC [Concomitant]
  4. PRILOSEC OTC [Concomitant]
  5. GABOPENTIN [Concomitant]
  6. ESTRIOL [Concomitant]
  7. PROGESTERONE [Concomitant]
  8. VICODIN [Concomitant]
  9. VAGINAL INSERTS [Concomitant]
  10. TAXOL [Concomitant]

REACTIONS (14)
  - ARTHRALGIA [None]
  - BLOOD CHOLESTEROL ABNORMAL [None]
  - DEAFNESS [None]
  - DEPRESSION [None]
  - DRUG PRESCRIBING ERROR [None]
  - DYSPEPSIA [None]
  - JOINT SWELLING [None]
  - OBESITY [None]
  - PAIN [None]
  - RESPIRATORY DISORDER [None]
  - SLEEP DISORDER [None]
  - TYPE 2 DIABETES MELLITUS [None]
  - URINARY INCONTINENCE [None]
  - UTERINE CANCER [None]
